FAERS Safety Report 11841969 (Version 1)
Quarter: 2015Q4

REPORT INFORMATION
  Report Type: Spontaneous
  Country: US (occurrence: US)
  Receive Date: 20151216
  Receipt Date: 20151216
  Transmission Date: 20160305
  Serious: No
  Sender: FDA-Public Use
  Company Number: US-RB-072674-15

PATIENT
  Sex: Female

DRUGS (1)
  1. DELSYM [Suspect]
     Active Substance: DEXTROMETHORPHAN
     Indication: COUGH
     Dosage: 5ML. TOOK 10 ML EVERY 4 HOURS AND THAN 20 ML EVERY 4 HOURS.,PRN
     Route: 065
     Dates: start: 20150103

REACTIONS (3)
  - Inappropriate schedule of drug administration [Recovered/Resolved]
  - Accidental overdose [Recovered/Resolved]
  - Drug ineffective [Not Recovered/Not Resolved]
